FAERS Safety Report 4334025-1 (Version None)
Quarter: 2004Q2

REPORT INFORMATION
  Report Type: 
  Country: None (occurrence: None)
  Receive Date: 20040402
  Receipt Date: 20040323
  Transmission Date: 20050107
  Serious: Yes (Hospitalization)
  Sender: FDA-Public Use
  Company Number: 163-20785-04030393

PATIENT
  Age: 65 Year
  Sex: Male

DRUGS (8)
  1. THALOMID [Suspect]
     Indication: RENAL CELL CARCINOMA STAGE UNSPECIFIED
     Dosage: 100 MG, DAILY FOR 14 DAYS, THEN OFF FOR 14 DAYS, ORAL
     Route: 048
     Dates: start: 20040116
  2. ZOMETA [Concomitant]
  3. LASIX [Concomitant]
  4. MAGNESIUM (MAGNESIUM) [Concomitant]
  5. MULTIVITAMIN (MULTIVITAMIN) [Concomitant]
  6. PAXIL [Concomitant]
  7. INSULIN [Concomitant]
  8. PROBENECID [Concomitant]

REACTIONS (1)
  - HYPERCALCAEMIA [None]
